FAERS Safety Report 6197689-6 (Version None)
Quarter: 2009Q2

REPORT INFORMATION
  Report Type: 
  Country: None (occurrence: None)
  Receive Date: 20090514
  Receipt Date: 20081121
  Transmission Date: 20091009
  Serious: Yes (Other)
  Sender: FDA-Public Use
  Company Number: AE-1108-360

PATIENT
  Age: 18 Year
  Sex: Male

DRUGS (3)
  1. LIDODERM [Suspect]
     Dosage: 1 PATCH A DAY
  2. ULTRAM [Concomitant]
  3. NEURONTIN [Concomitant]

REACTIONS (3)
  - CONVULSION [None]
  - FALL [None]
  - JOINT DISLOCATION [None]
